FAERS Safety Report 7052532-8 (Version None)
Quarter: 2010Q4

REPORT INFORMATION
  Report Type: 
  Country: None (occurrence: None)
  Receive Date: 20101019
  Receipt Date: 20100917
  Transmission Date: 20110411
  Serious: Yes (Other)
  Sender: FDA-Public Use
  Company Number: CA-GENENTECH-308278

PATIENT
  Sex: Male

DRUGS (1)
  1. LUCENTIS [Suspect]
     Indication: PRODUCT USED FOR UNKNOWN INDICATION
     Dosage: 0.5 MG, 1/MONTH
     Route: 031
     Dates: start: 20080623

REACTIONS (3)
  - BONE NEOPLASM [None]
  - LUNG NEOPLASM MALIGNANT [None]
  - PROSTATE CANCER [None]
